FAERS Safety Report 5451248-9 (Version None)
Quarter: 2007Q3

REPORT INFORMATION
  Report Type: 
  Country: None (occurrence: None)
  Receive Date: 20070913
  Receipt Date: 20070904
  Transmission Date: 20080115
  Serious: Yes (Hospitalization)
  Sender: FDA-Public Use
  Company Number: FR-BRISTOL-MYERS SQUIBB COMPANY-13903810

PATIENT
  Age: 56 Year
  Sex: Female

DRUGS (10)
  1. ENDOXAN [Suspect]
     Indication: SYSTEMIC SCLEROSIS
     Dosage: 1 DOSAGE FORM- 1G/M2
     Route: 040
     Dates: start: 20070626, end: 20070724
  2. TACROLIMUS [Concomitant]
     Dates: start: 20061201, end: 20070612
  3. DEROXAT [Concomitant]
     Dates: start: 20070101
  4. TILDIEM [Concomitant]
     Dates: start: 20070101
  5. TRIATEC [Concomitant]
     Dates: start: 20070101
  6. CLARITIN [Concomitant]
     Dates: start: 20070101
  7. TARDYFERON-FOL [Concomitant]
     Dates: start: 20070101
  8. ESOMEPRAZOLE MAGNESIUM [Concomitant]
     Dates: start: 20070101
  9. INIPOMP [Concomitant]
     Dates: start: 20070101
  10. CONTRAMAL [Concomitant]
     Dates: start: 20070101

REACTIONS (5)
  - ACUTE PULMONARY OEDEMA [None]
  - ANAEMIA [None]
  - LEFT VENTRICULAR FAILURE [None]
  - ORTHOPNOEA [None]
  - PRODUCTIVE COUGH [None]
